FAERS Safety Report 5218986-4 (Version None)
Quarter: 2007Q1

REPORT INFORMATION
  Report Type: 
  Country: None (occurrence: None)
  Receive Date: 20070125
  Receipt Date: 20070124
  Transmission Date: 20070707
  Serious: Yes (Death, Other)
  Sender: FDA-Public Use
  Company Number: PHBS2006CN02851

PATIENT
  Age: 42 Year
  Sex: Male

DRUGS (7)
  1. DIOVAN [Suspect]
     Indication: HYPERTENSION
     Dosage: 80 MG, QD
     Route: 048
     Dates: start: 20060208, end: 20060212
  2. DIGOXIN [Concomitant]
     Dosage: 0.125 MG, QD
  3. HCT [Concomitant]
     Dosage: 12.5 MG, QN
  4. BETALOC [Concomitant]
     Dosage: 12.5 MG, BID
  5. ZOLPIDEM TARTRATE [Concomitant]
     Dosage: 10 MG, QN
  6. LIPITOR [Concomitant]
     Dosage: 40 MG, QN
  7. TRIMETAZIDINE [Concomitant]
     Dosage: 20 MG, TID

REACTIONS (4)
  - DRY MOUTH [None]
  - HEART RATE DECREASED [None]
  - HYPOTENSION [None]
  - MYOCARDIAL INFARCTION [None]
